FAERS Safety Report 10390605 (Version 2)
Quarter: 2014Q4

REPORT INFORMATION
  Report Type: Spontaneous
  Country: IT (occurrence: IT)
  Receive Date: 20140818
  Receipt Date: 20141031
  Transmission Date: 20150528
  Serious: Yes (Other)
  Sender: FDA-Public Use
  Company Number: IT-ACTAVIS-2014-17685

PATIENT
  Age: 59 Year
  Sex: Female

DRUGS (6)
  1. IRINOTECAN (UNKNOWN) [Suspect]
     Active Substance: IRINOTECAN
     Indication: PANCREATIC CARCINOMA
     Dosage: 270 MG, CYCLICAL
     Route: 042
     Dates: start: 20140716, end: 20140729
  2. OXALIPLATIN SUN [Suspect]
     Active Substance: OXALIPLATIN
     Indication: PANCREATIC CARCINOMA
     Dosage: 140 MG, CYCLICAL
     Route: 042
     Dates: start: 20140716, end: 20140729
  3. FLUOROURACIL. [Suspect]
     Active Substance: FLUOROURACIL
     Dosage: 2700 MG, UNKNOWN
     Route: 041
  4. FLUOROURACIL. [Suspect]
     Active Substance: FLUOROURACIL
     Indication: PANCREATIC CARCINOMA
     Dosage: 3400 MG, CYCLICAL
     Route: 041
     Dates: start: 20140716, end: 20140729
  5. OXALIPLATIN SUN [Suspect]
     Active Substance: OXALIPLATIN
     Dosage: 100 MG, UNKNOWN
     Route: 042
  6. IRINOTECAN (UNKNOWN) [Suspect]
     Active Substance: IRINOTECAN
     Dosage: 200 MG, UNKNOWN
     Route: 042

REACTIONS (2)
  - Neutropenia [Unknown]
  - Thrombocytopenia [Unknown]

NARRATIVE: CASE EVENT DATE: 20140729
